FAERS Safety Report 7076065-8 (Version None)
Quarter: 2010Q4

REPORT INFORMATION
  Report Type: 
  Country: None (occurrence: None)
  Receive Date: 20101101
  Receipt Date: 20101025
  Transmission Date: 20110411
  Serious: No
  Sender: FDA-Public Use
  Company Number: US-BIOGENIDEC-2010BI036903

PATIENT
  Sex: Female

DRUGS (2)
  1. AVONEX [Suspect]
     Indication: MULTIPLE SCLEROSIS
     Route: 030
     Dates: start: 20040901, end: 20091101
  2. AVONEX [Suspect]
     Route: 030
     Dates: start: 20100101

REACTIONS (20)
  - ARTHRITIS [None]
  - ARTICULAR DISC DISORDER [None]
  - DIPLOPIA [None]
  - FALL [None]
  - FATIGUE [None]
  - FEELING ABNORMAL [None]
  - LEUKOCYTOCLASTIC VASCULITIS [None]
  - LOSS OF CONSCIOUSNESS [None]
  - MEMORY IMPAIRMENT [None]
  - MUSCLE SPASMS [None]
  - NERVOUS SYSTEM DISORDER [None]
  - PAIN [None]
  - PAIN IN EXTREMITY [None]
  - PRURITUS [None]
  - PYREXIA [None]
  - STRESS [None]
  - TEMPERATURE INTOLERANCE [None]
  - THORACIC VERTEBRAL FRACTURE [None]
  - URTICARIA [None]
  - VISION BLURRED [None]
